FAERS Safety Report 5357421-2 (Version None)
Quarter: 2007Q2

REPORT INFORMATION
  Report Type: 
  Country: None (occurrence: None)
  Receive Date: 20070530
  Receipt Date: 20061110
  Transmission Date: 20071010
  Serious: Yes (Hospitalization)
  Sender: FDA-Public Use
  Company Number: US200607003025

PATIENT
  Age: 51 Year
  Sex: Female
  Weight: 56.7 kg

DRUGS (5)
  1. ZYPREXA [Suspect]
     Dosage: SEE IMAGE
     Dates: start: 20031204, end: 20040102
  2. ZYPREXA [Suspect]
     Dosage: SEE IMAGE
     Dates: start: 20040102, end: 20040202
  3. ZYPREXA [Suspect]
     Dosage: SEE IMAGE
     Dates: end: 20040402
  4. ZYPREXA [Suspect]
     Dosage: SEE IMAGE
     Dates: start: 20040202
  5. ZYPREXA [Suspect]
     Dosage: SEE IMAGE
     Dates: start: 20040402

REACTIONS (2)
  - ABDOMINAL PAIN UPPER [None]
  - PANCREATITIS [None]
